FAERS Safety Report 8859093 (Version 1)
Quarter: 2012Q4

REPORT INFORMATION
  Report Type: Spontaneous
  Country: US (occurrence: None)
  Receive Date: 20121024
  Receipt Date: 20121024
  Transmission Date: 20130627
  Serious: Yes (Death)
  Sender: FDA-Public Use
  Company Number: None

PATIENT
  Age: 90 Year
  Sex: Female

DRUGS (2)
  1. AVASTIN [Suspect]
     Indication: WET MACULAR DEGENERATION
     Dosage: 1 -right eye- every 6 weeks intraocular
     Route: 031
     Dates: start: 20110310, end: 20120809
  2. EYLEA [Suspect]
     Indication: WET MACULAR DEGENERATION
     Dosage: 1 -left eye- every 8 weeks intraocular
     Route: 031
     Dates: start: 20120209, end: 20120828

REACTIONS (1)
  - Death [None]
